FAERS Safety Report 9129597 (Version 1)
Quarter: 2013Q1

REPORT INFORMATION
  Report Type: Report from Study
  Country: BE (occurrence: BE)
  Receive Date: 20130125
  Receipt Date: 20130125
  Transmission Date: 20140127
  Serious: Yes (Life-Threatening)
  Sender: FDA-Public Use
  Company Number: BE-ROCHE-1183569

PATIENT
  Age: 75 Year
  Sex: Female

DRUGS (6)
  1. AVASTIN [Suspect]
     Indication: OVARIAN CANCER
     Route: 042
     Dates: start: 20121115, end: 20121206
  2. FRAXIPARINE [Concomitant]
     Indication: THROMBOSIS PROPHYLAXIS
     Route: 058
  3. NOBITEN [Concomitant]
     Indication: HYPERTENSION
     Route: 048
  4. TEVETEN COMP [Concomitant]
     Indication: HYPERTENSION
     Dosage: 600/12.5 MG
     Route: 048
  5. ZOLPIDEM [Concomitant]
     Indication: INSOMNIA
     Route: 048
  6. TRAZOLAN [Concomitant]
     Indication: INSOMNIA
     Route: 048

REACTIONS (1)
  - Rash maculo-papular [Recovered/Resolved]
